FAERS Safety Report 6815255-3 (Version None)
Quarter: 2010Q3

REPORT INFORMATION
  Report Type: 
  Country: None (occurrence: None)
  Receive Date: 20100701
  Receipt Date: 20100701
  Transmission Date: 20110219
  Serious: Yes (Other)
  Sender: FDA-Public Use
  Company Number: None

PATIENT
  Age: 24 Year
  Sex: Male
  Weight: 72 kg

DRUGS (1)
  1. PROPECIA [Suspect]
     Indication: ALOPECIA
     Dosage: 1 MG ONCE A DAY PO
     Route: 048
     Dates: start: 20060601, end: 20071101

REACTIONS (8)
  - ANORGASMIA [None]
  - DEPRESSION [None]
  - ERECTILE DYSFUNCTION [None]
  - FEELING ABNORMAL [None]
  - LIBIDO DECREASED [None]
  - MEMORY IMPAIRMENT [None]
  - SENSORY DISTURBANCE [None]
  - SLEEP DISORDER [None]
